FAERS Safety Report 16232725 (Version 1)
Quarter: 2019Q2

REPORT INFORMATION
  Report Type: Spontaneous
  Country: GB (occurrence: GB)
  Receive Date: 20190424
  Receipt Date: 20190424
  Transmission Date: 20190711
  Serious: Yes (Other)
  Sender: FDA-Public Use
  Company Number: GB-TORRENT-00020941

PATIENT
  Age: 18 Year
  Sex: Female
  Weight: 67 kg

DRUGS (4)
  1. DEXAMFETAMINE [Concomitant]
     Active Substance: DEXTROAMPHETAMINE
     Indication: ATTENTION DEFICIT/HYPERACTIVITY DISORDER
  2. ELVANSE [Concomitant]
     Active Substance: LISDEXAMFETAMINE DIMESYLATE
     Indication: ATTENTION DEFICIT/HYPERACTIVITY DISORDER
  3. VENTOLIN [Concomitant]
     Active Substance: ALBUTEROL SULFATE
     Indication: PRODUCT USED FOR UNKNOWN INDICATION
     Dosage: UNKNOWN
  4. QUETIAPINE FUMARATE. [Suspect]
     Active Substance: QUETIAPINE FUMARATE
     Indication: PSYCHOTIC DISORDER
     Route: 048
     Dates: start: 20170206

REACTIONS (10)
  - Abnormal dreams [Not Recovered/Not Resolved]
  - Blood prolactin increased [Recovered/Resolved]
  - Somnolence [Not Recovered/Not Resolved]
  - Galactorrhoea [Recovered/Resolved]
  - Abnormal weight gain [Not Recovered/Not Resolved]
  - Nightmare [Not Recovered/Not Resolved]
  - Libido decreased [Not Recovered/Not Resolved]
  - Increased appetite [Not Recovered/Not Resolved]
  - Hunger [Not Recovered/Not Resolved]
  - Cardiometabolic syndrome [Not Recovered/Not Resolved]

NARRATIVE: CASE EVENT DATE: 20170206
